FAERS Safety Report 13957201 (Version 1)
Quarter: 2017Q3

REPORT INFORMATION
  Report Type: Spontaneous
  Country: DE (occurrence: DE)
  Receive Date: 20170912
  Receipt Date: 20170912
  Transmission Date: 20171128
  Serious: Yes (Hospitalization)
  Sender: FDA-Public Use
  Company Number: DE-AUROBINDO-AUR-APL-2017-40079

PATIENT
  Age: 78 Year
  Sex: Female
  Weight: 84 kg

DRUGS (2)
  1. BISOPROLOL [Concomitant]
     Active Substance: BISOPROLOL
     Indication: HYPERTENSION
     Dosage: 5 MG, ONCE A DAY
     Route: 048
  2. AMOXI-CLAVULAN AUROBINDO FILMTABLETTEN 875/125MG [Suspect]
     Active Substance: AMOXICILLIN\CLAVULANIC ACID
     Indication: INFLAMMATION OF WOUND
     Dosage: 1 DF, TWO TIMES A DAY
     Route: 048
     Dates: start: 20170804, end: 20170807

REACTIONS (4)
  - Flushing [Not Recovered/Not Resolved]
  - Pruritus generalised [Not Recovered/Not Resolved]
  - Diarrhoea [Recovered/Resolved]
  - Skin burning sensation [Not Recovered/Not Resolved]

NARRATIVE: CASE EVENT DATE: 20170810
